FAERS Safety Report 6797602 (Version 6)
Quarter: 2015Q4

REPORT INFORMATION
  Report Type: Spontaneous
  Country: FR (occurrence: FR)
  Receive Date: 20081028
  Receipt Date: 20151106
  Transmission Date: 20160305
  Serious: Yes (Other)
  Sender: FDA-Public Use
  Company Number: FR-BRISTOL-MYERS SQUIBB COMPANY-14332951

PATIENT
  Age: 34 Year
  Sex: Female
  Weight: 92 kg

DRUGS (5)
  1. NORVIR [Suspect]
     Active Substance: RITONAVIR
     Indication: HIV INFECTION
     Dosage: PTC TO DELIVERY
     Route: 048
     Dates: start: 20070217, end: 20070703
  2. KALETRA [Suspect]
     Active Substance: LOPINAVIR\RITONAVIR
     Indication: HIV INFECTION
     Dosage: UNK
     Route: 048
  3. SUSTIVA [Suspect]
     Active Substance: EFAVIRENZ
     Indication: HIV INFECTION
     Dosage: 600 MG, QD
     Route: 048
     Dates: start: 20060914, end: 20070217
  4. TRUVADA [Suspect]
     Active Substance: EMTRICITABINE\TENOFOVIR DISOPROXIL FUMARATE
     Indication: HIV INFECTION
     Dosage: 1 DF, QD
     Route: 048
     Dates: start: 20060914
  5. REYATAZ [Suspect]
     Active Substance: ATAZANAVIR SULFATE
     Indication: HIV INFECTION
     Dosage: 300 MG, QD
     Route: 048
     Dates: start: 20070217, end: 20070703

REACTIONS (4)
  - Pregnancy on contraceptive [Unknown]
  - Abortion induced [Unknown]
  - Maternal exposure during pregnancy [Recovered/Resolved]
  - Oligohydramnios [Unknown]

NARRATIVE: CASE EVENT DATE: 20070611
